FAERS Safety Report 18615150 (Version 1)
Quarter: 2020Q4

REPORT INFORMATION
  Report Type: Spontaneous
  Country: IN (occurrence: IN)
  Receive Date: 20201215
  Receipt Date: 20201215
  Transmission Date: 20210114
  Serious: No
  Sender: FDA-Public Use
  Company Number: IN-LUPIN LIMITED-2020-10109

PATIENT
  Age: 36 Year
  Sex: Male

DRUGS (2)
  1. TELISTA AM TABS BILAYER 5 MG/40 MG [Suspect]
     Active Substance: AMLODIPINE\TELMISARTAN
     Indication: BLOOD PRESSURE ABNORMAL
     Dosage: 1 DOSAGE FORM, QD
     Route: 065
     Dates: start: 202011
  2. TELISTA AM TABS BILAYER 5 MG/40 MG [Suspect]
     Active Substance: AMLODIPINE\TELMISARTAN
     Dosage: 1.5 DOSAGE FORM, QD (1 TABLET IN THE MORNING AND HALF TABLET IN THE EVENING)
     Route: 065
     Dates: start: 202011

REACTIONS (2)
  - Blood pressure increased [Not Recovered/Not Resolved]
  - Intentional product use issue [Unknown]

NARRATIVE: CASE EVENT DATE: 202011
